FAERS Safety Report 19816460 (Version 1)
Quarter: 2021Q3

REPORT INFORMATION
  Report Type: Report from Study
  Country: US (occurrence: US)
  Receive Date: 20210909
  Receipt Date: 20210909
  Transmission Date: 20211014
  Serious: No
  Sender: FDA-Public Use
  Company Number: NVSC2021US205424

PATIENT
  Age: 54 Year
  Sex: Female

DRUGS (1)
  1. KESIMPTA [Suspect]
     Active Substance: OFATUMUMAB
     Indication: RELAPSING MULTIPLE SCLEROSIS
     Dosage: (SUBCUTANEOUS? BENEATH THE SKIN, USUALLY VIA INJECTION)
     Route: 058
     Dates: start: 20210826

REACTIONS (2)
  - Joint stiffness [Unknown]
  - Headache [Unknown]
